FAERS Safety Report 5059926-0 (Version None)
Quarter: 2006Q3

REPORT INFORMATION
  Report Type: 
  Country: None (occurrence: None)
  Receive Date: 20060719
  Receipt Date: 20060711
  Transmission Date: 20061208
  Serious: No
  Sender: FDA-Public Use
  Company Number: E2090-00044-SPO-JP

PATIENT
  Age: 4 Year
  Sex: Male

DRUGS (2)
  1. ZONISAMIDE [Suspect]
     Indication: EPILEPSY
     Dosage: ORAL
     Route: 048
  2. VALPROATE SODIUM [Suspect]
     Indication: EPILEPSY
     Dosage: ORAL
     Route: 048

REACTIONS (6)
  - METABOLIC ACIDOSIS [None]
  - MULTIPLE FRACTURES [None]
  - OSTEOMALACIA [None]
  - PNEUMONIA [None]
  - RENAL TUBULAR ACIDOSIS [None]
  - VITAMIN D ABNORMAL [None]
